FAERS Safety Report 7419639-4 (Version None)
Quarter: 2011Q2

REPORT INFORMATION
  Report Type: 
  Country: None (occurrence: None)
  Receive Date: 20110418
  Receipt Date: 20110413
  Transmission Date: 20111010
  Serious: Yes (Hospitalization)
  Sender: FDA-Public Use
  Company Number: IE-US-EMD SERONO, INC.-7053515

PATIENT
  Age: 59 Year
  Sex: Female

DRUGS (3)
  1. REBIF [Suspect]
     Indication: MULTIPLE SCLEROSIS
     Route: 058
  2. LIORESAL [Concomitant]
     Indication: MULTIPLE SCLEROSIS
  3. TRADOL [Concomitant]
     Indication: ANALGESIC THERAPY

REACTIONS (1)
  - GRAND MAL CONVULSION [None]
